FAERS Safety Report 17643341 (Version 1)
Quarter: 2020Q2

REPORT INFORMATION
  Report Type: Spontaneous
  Country: US (occurrence: US)
  Receive Date: 20200407
  Receipt Date: 20200407
  Transmission Date: 20200713
  Serious: Yes (Other)
  Sender: FDA-Public Use
  Company Number: None

PATIENT
  Age: 32 Year
  Sex: Female
  Weight: 67.5 kg

DRUGS (1)
  1. ELURYNG [Suspect]
     Active Substance: ETHINYL ESTRADIOL\ETONOGESTREL
     Indication: CONTRACEPTION
     Dosage: ?          QUANTITY:1 RING;OTHER FREQUENCY:INSERT ONCE A MONT;?
     Route: 067
     Dates: start: 20200201

REACTIONS (4)
  - Metrorrhagia [None]
  - Headache [None]
  - Amenorrhoea [None]
  - Anxiety [None]

NARRATIVE: CASE EVENT DATE: 20200402
